FAERS Safety Report 8976753 (Version 1)
Quarter: 2012Q4

REPORT INFORMATION
  Report Type: Report from Study
  Country: JP (occurrence: JP)
  Receive Date: 20121220
  Receipt Date: 20121220
  Transmission Date: 20130627
  Serious: Yes (Life-Threatening, Other)
  Sender: FDA-Public Use
  Company Number: JP-OTSUKA-JP-2012-15720

PATIENT
  Age: 74 Year
  Sex: Female

DRUGS (16)
  1. SAMSCA [Suspect]
     Indication: FLUID RETENTION
     Dosage: 15 Mg milligram(s), qam
     Route: 048
     Dates: start: 20120411, end: 20120413
  2. AMLODIN [Concomitant]
     Dosage: 5 Mg milligram(s), daily dose
     Route: 048
     Dates: end: 20120406
  3. ADALAT CR [Concomitant]
     Dosage: 40 Mg milligram(s), daily dose
     Route: 048
     Dates: end: 20120406
  4. OLMETEC [Concomitant]
     Dosage: 30 Mg milligram(s), daily dose
     Route: 048
     Dates: end: 20120406
  5. ARTIST [Concomitant]
     Dosage: 10 Mg milligram(s), daily dose
     Route: 048
     Dates: end: 20120406
  6. LASIX [Concomitant]
     Dosage: 20 Mg milligram(s), daily dose
     Route: 048
     Dates: end: 20120406
  7. KAYEXALATE [Concomitant]
     Dosage: 5 G gram(s), daily dose
     Route: 048
     Dates: end: 20120406
  8. IOPAMIRON [Concomitant]
     Indication: ACUTE CORONARY SYNDROME
     Dosage: 192 ml millilitre(s), daily dose
     Route: 042
     Dates: start: 20120406, end: 20120406
  9. HANP [Concomitant]
     Indication: CARDIAC FAILURE
     Dosage: 3000 mcg, daily dose
     Route: 042
     Dates: start: 20120406, end: 20120411
  10. BAYASPIRIN [Concomitant]
     Indication: ACUTE CORONARY SYNDROME
     Dosage: 100 Mg milligram(s), daily dose
     Route: 048
     Dates: start: 20120406
  11. PLAVIX [Concomitant]
     Indication: ACUTE CORONARY SYNDROME
     Dosage: 75 Mg milligram(s), daily dose
     Route: 048
     Dates: start: 20120406
  12. HEPARIN NA [Concomitant]
     Indication: ACUTE CORONARY SYNDROME
     Dosage: 10 Kiu iu(1000s), daily dose
     Route: 042
     Dates: start: 20120406
  13. PRECEDEX [Concomitant]
     Dosage: 200 mcg, daily dose
     Route: 042
     Dates: start: 20120406
  14. CARBENIN [Concomitant]
     Dosage: 1 G gram(s), daily dose
     Route: 042
     Dates: start: 20120406
  15. PREDOPA [Concomitant]
     Indication: CARDIAC FAILURE
     Dosage: 210 Mg milligram(s), daily dose
     Route: 042
     Dates: start: 20120407, end: 20120408
  16. LASIX [Concomitant]
     Indication: CARDIAC FAILURE
     Dosage: 20 Mg milligram(s), daily dose
     Route: 042
     Dates: start: 20120407, end: 20120413

REACTIONS (3)
  - Renal failure acute [Recovered/Resolved]
  - Haemoglobin decreased [Unknown]
  - Acute respiratory distress syndrome [Unknown]
